FAERS Safety Report 14475304 (Version 1)
Quarter: 2018Q1

REPORT INFORMATION
  Report Type: Spontaneous
  Country: US (occurrence: US)
  Receive Date: 20180131
  Receipt Date: 20180131
  Transmission Date: 20180509
  Serious: Yes (Hospitalization, Disabling)
  Sender: FDA-Public Use
  Company Number: None

PATIENT
  Age: 91 Year
  Sex: Female
  Weight: 54.6 kg

DRUGS (21)
  1. DUONEB [Concomitant]
     Active Substance: ALBUTEROL SULFATE\IPRATROPIUM BROMIDE
  2. MULTIVITAMIN [Concomitant]
     Active Substance: VITAMINS
  3. ASPIRIN. [Suspect]
     Active Substance: ASPIRIN
     Indication: CEREBROVASCULAR ACCIDENT
     Route: 048
  4. ACETAMINOPHEN. [Concomitant]
     Active Substance: ACETAMINOPHEN
  5. AMLODIPINE [Concomitant]
     Active Substance: AMLODIPINE BESYLATE
  6. FUROSEMIDE. [Concomitant]
     Active Substance: FUROSEMIDE
  7. LOSARTAN. [Concomitant]
     Active Substance: LOSARTAN
  8. FLUTICASONE. [Concomitant]
     Active Substance: FLUTICASONE
  9. WARFARIN [Suspect]
     Active Substance: WARFARIN
     Indication: ATRIAL FIBRILLATION
     Route: 048
  10. ASCORBIC ACID. [Concomitant]
     Active Substance: ASCORBIC ACID
  11. MAGNESIUM OXIDE. [Concomitant]
     Active Substance: MAGNESIUM OXIDE
  12. TRIAMCINOLONE TOPICAL CREAM 0.1% [Concomitant]
     Active Substance: TRIAMCINOLONE
  13. IRON [Concomitant]
     Active Substance: IRON
  14. ALLOPURINOL. [Concomitant]
     Active Substance: ALLOPURINOL
  15. METOLAZONE. [Concomitant]
     Active Substance: METOLAZONE
  16. DOCUSATE [Concomitant]
     Active Substance: DOCUSATE
  17. SYSTANE EYE LUBRICANT [Concomitant]
  18. OMEPRAZOLE. [Concomitant]
     Active Substance: OMEPRAZOLE
  19. POTASSIUM CHLORIDE. [Concomitant]
     Active Substance: POTASSIUM CHLORIDE
  20. GABAPENTIN. [Concomitant]
     Active Substance: GABAPENTIN
  21. METOPROLOL. [Concomitant]
     Active Substance: METOPROLOL

REACTIONS (7)
  - Therapy cessation [None]
  - Cerebellar haemorrhage [None]
  - Confusional state [None]
  - Motor dysfunction [None]
  - Dysphagia [None]
  - Dysarthria [None]
  - Cerebellar infarction [None]

NARRATIVE: CASE EVENT DATE: 20180117
